FAERS Safety Report 20145215 (Version 3)
Quarter: 2022Q1

REPORT INFORMATION
  Report Type: Spontaneous
  Country: US (occurrence: US)
  Receive Date: 20211203
  Receipt Date: 20220110
  Transmission Date: 20220423
  Serious: No
  Sender: FDA-Public Use
  Company Number: US-LUPIN PHARMACEUTICALS INC.-2021-23547

PATIENT
  Age: 47 Year
  Sex: Female
  Weight: 158.73 kg

DRUGS (2)
  1. LEVETIRACETAM [Suspect]
     Active Substance: LEVETIRACETAM
     Indication: Seizure
     Dosage: 1000 MILLIGRAM, BID (1 IN MORNING AND 1 IN EVENING)
     Route: 048
     Dates: start: 20211119
  2. LEVETIRACETAM [Suspect]
     Active Substance: LEVETIRACETAM
     Indication: Cerebrovascular accident

REACTIONS (9)
  - Muscle twitching [Not Recovered/Not Resolved]
  - Tic [Not Recovered/Not Resolved]
  - Peripheral swelling [Not Recovered/Not Resolved]
  - Lethargy [Not Recovered/Not Resolved]
  - Product dose omission in error [Unknown]
  - Cognitive disorder [Not Recovered/Not Resolved]
  - Off label use [Unknown]
  - Hyperphagia [Not Recovered/Not Resolved]
  - Treatment noncompliance [Unknown]

NARRATIVE: CASE EVENT DATE: 20211101
